FAERS Safety Report 10010593 (Version 1)
Quarter: 2014Q1

REPORT INFORMATION
  Report Type: Spontaneous
  Country: US (occurrence: None)
  Receive Date: 20140312
  Receipt Date: 20140312
  Transmission Date: 20141002
  Serious: Yes (Disabling)
  Sender: FDA-Public Use
  Company Number: None

PATIENT
  Age: 64 Year
  Sex: Male
  Weight: 58.51 kg

DRUGS (2)
  1. LEVAQUIN [Suspect]
     Indication: SINUSITIS
     Dosage: ONE Q DAY QD ORAL
     Route: 048
     Dates: start: 20140305, end: 20140307
  2. CELEBREX [Concomitant]

REACTIONS (1)
  - Tendonitis [None]
